FAERS Safety Report 16016976 (Version 24)
Quarter: 2024Q4

REPORT INFORMATION
  Report Type: Spontaneous
  Country: US (occurrence: US)
  Receive Date: 20190228
  Receipt Date: 20241224
  Transmission Date: 20250114
  Serious: Yes (Other)
  Sender: PFIZER
  Company Number: US-PFIZER INC-2019083307

PATIENT
  Age: 76 Year
  Sex: Female
  Weight: 73 kg

DRUGS (21)
  1. BOSULIF [Suspect]
     Active Substance: BOSUTINIB MONOHYDRATE
     Indication: Chronic myeloid leukaemia (in remission)
     Dosage: 400 MG, DAILY (AT 10:00 AM)
     Route: 048
     Dates: start: 201901, end: 20220916
  2. BOSULIF [Suspect]
     Active Substance: BOSUTINIB MONOHYDRATE
     Dosage: 400 MG, DAILY (AT 10:00 AM)
     Route: 048
  3. BOSULIF [Suspect]
     Active Substance: BOSUTINIB MONOHYDRATE
     Dosage: TAKE 3 TABS (300 MG) PO (PER ORAL) ONCE DAILY
     Route: 048
     Dates: start: 20230110
  4. LIDOCAINE HYDROCHLORIDE/MENTHOL [Concomitant]
     Dosage: UNK
  5. TRAMADOL HCL [Concomitant]
     Active Substance: TRAMADOL HYDROCHLORIDE
     Indication: Pain
     Dosage: 50 MG, UNK (UUD 30 DAYS 2)
     Route: 048
  6. GABAPENTIN [Concomitant]
     Active Substance: GABAPENTIN
     Indication: Radiculopathy
     Dosage: 400 MG, UNK (90 DAYS, 1)
     Route: 048
  7. OXYBUTYNIN CHLORIDE [Concomitant]
     Active Substance: OXYBUTYNIN CHLORIDE
     Indication: Hypertonic bladder
     Dosage: UNK (90 DAYS, 1)
  8. RANITIDINE HYDROCHLORIDE [Concomitant]
     Active Substance: RANITIDINE HYDROCHLORIDE
     Dosage: 300 MG, UNK (TAKE 1/2 AM, 1/2 PM,/90 DAYS, 1)
  9. METFORMIN HYDROCHLORIDE [Concomitant]
     Active Substance: METFORMIN HYDROCHLORIDE
     Dosage: 500 MG, UNK (90 DAYS, 1)
  10. LOSARTAN POTASSIUM [Concomitant]
     Active Substance: LOSARTAN POTASSIUM
     Dosage: 50 MG, UNK (90 DAYS, 1)
  11. LOVASTATIN [Concomitant]
     Active Substance: LOVASTATIN
     Dosage: 40 MG, UNK (90 DAYS, 1)
     Route: 048
  12. LEVOTHYROXINE SODIUM [Concomitant]
     Active Substance: LEVOTHYROXINE SODIUM
     Indication: Hypothyroidism
     Dosage: UNK (90 DAYS, 3)
  13. CO Q 10 [UBIDECARENONE] [Concomitant]
     Dosage: 100 MG, 1X/DAY (1 QD O DAYS, 0)
     Route: 048
  14. OMEPRAZOLE [Concomitant]
     Active Substance: OMEPRAZOLE
     Dosage: 20 MG, 1X/DAY (1 QD 90 DAYS, 3)
     Route: 048
     Dates: end: 20190104
  15. MELATONIN [Concomitant]
     Active Substance: MELATONIN
     Dosage: 10 MG, UNK (TS6-8 O DAYS, O)
     Route: 048
  16. MINERALS\VITAMINS [Concomitant]
     Active Substance: MINERALS\VITAMINS
     Dosage: UNK, 1X/DAY
  17. VALACYCLOVIR HYDROCHLORIDE [Concomitant]
     Active Substance: VALACYCLOVIR HYDROCHLORIDE
     Dosage: 1 G, UNK (UUD 30 DAYS, 2)
     Route: 048
  18. LORATADINE [Concomitant]
     Active Substance: LORATADINE
     Dosage: 10 MG, 1X/DAY(1 QD 0 DAYS, 0)
     Route: 048
  19. LATANOPROST [Concomitant]
     Active Substance: LATANOPROST
     Dosage: 1 GTT, UNK (1GTTH 0 DAYS, O)
     Route: 047
  20. BIOTIN [Concomitant]
     Active Substance: BIOTIN
     Dosage: 5000 UG, 1X/DAY (1QD0 DAYS, 0)
  21. TYLENOL EXTRA STRENGTH [Concomitant]
     Active Substance: ACETAMINOPHEN
     Dosage: UNK

REACTIONS (24)
  - Neuropathy peripheral [Unknown]
  - Glossitis [Recovered/Resolved]
  - Swollen tongue [Recovered/Resolved]
  - Tongue erythema [Recovered/Resolved]
  - Hypoaesthesia [Recovering/Resolving]
  - Back pain [Not Recovered/Not Resolved]
  - Stomatitis [Recovering/Resolving]
  - Fall [Unknown]
  - Contusion [Unknown]
  - Cerebral disorder [Unknown]
  - Brain fog [Unknown]
  - Blood potassium increased [Unknown]
  - Fatigue [Recovering/Resolving]
  - Speech disorder [Unknown]
  - Thinking abnormal [Unknown]
  - Memory impairment [Unknown]
  - Lip swelling [Unknown]
  - Alopecia [Unknown]
  - Dry mouth [Unknown]
  - Taste disorder [Unknown]
  - Nausea [Not Recovered/Not Resolved]
  - Constipation [Unknown]
  - Insomnia [Unknown]
  - Asthenia [Unknown]

NARRATIVE: CASE EVENT DATE: 20190101
